FAERS Safety Report 17422749 (Version 1)
Quarter: 2020Q1

REPORT INFORMATION
  Report Type: Spontaneous
  Country: IN (occurrence: IN)
  Receive Date: 20200215
  Receipt Date: 20200215
  Transmission Date: 20200409
  Serious: Yes (Hospitalization, Other)
  Sender: FDA-Public Use
  Company Number: IN-VISTAPHARM, INC.-VER202002-000270

PATIENT
  Age: 3 Year
  Sex: Male

DRUGS (4)
  1. HYDROCORTISONE. [Concomitant]
     Active Substance: HYDROCORTISONE
     Indication: MENINGITIS
     Dosage: 2 MG TWICE A DAY FOR FIVE DAYS
     Route: 042
  2. AUGMENTIN [Concomitant]
     Active Substance: AMOXICILLIN\CLAVULANATE POTASSIUM
     Indication: MENINGITIS
     Dosage: 5 ML THRICE A DAY
  3. PREDNISOLONE. [Suspect]
     Active Substance: PREDNISOLONE
     Indication: PRODUCT USED FOR UNKNOWN INDICATION
     Dosage: 1 MG ONCE A DAY FOR FOUR WEEKS
     Route: 048
  4. PREDNISOLONE. [Suspect]
     Active Substance: PREDNISOLONE
     Dosage: 0.5 MG PER DAY FOR ANOTHER TWO WEEKS
     Route: 048

REACTIONS (2)
  - Epidural lipomatosis [Unknown]
  - Extradural abscess [Unknown]
